FAERS Safety Report 8427503-7 (Version None)
Quarter: 2012Q2

REPORT INFORMATION
  Report Type: 
  Country: None (occurrence: None)
  Receive Date: 20120611
  Receipt Date: 20120606
  Transmission Date: 20120825
  Serious: Yes (Hospitalization)
  Sender: FDA-Public Use
  Company Number: US-B.I. PHARMACEUTICALS,INC./RIDGEFIELD-2012-BP-13161BP

PATIENT
  Sex: Female

DRUGS (2)
  1. SYMBICORT [Concomitant]
  2. SPIRIVA [Suspect]

REACTIONS (1)
  - ATRIAL FIBRILLATION [None]
